FAERS Safety Report 15879997 (Version 4)
Quarter: 2023Q2

REPORT INFORMATION
  Report Type: Spontaneous
  Country: GB (occurrence: GB)
  Receive Date: 20190128
  Receipt Date: 20230428
  Transmission Date: 20230721
  Serious: Yes (Hospitalization)
  Sender: FDA-Public Use
  Company Number: PHHY2019GB018014

PATIENT
  Age: 48 Year
  Sex: Female

DRUGS (40)
  1. DOCETAXEL [Suspect]
     Active Substance: DOCETAXEL
     Indication: Breast cancer metastatic
     Dosage: 150 MG, Q3W
     Route: 042
     Dates: start: 20170303, end: 20170303
  2. DOCETAXEL [Suspect]
     Active Substance: DOCETAXEL
     Dosage: 120 MG, Q3W
     Route: 042
     Dates: start: 20170324, end: 20170627
  3. PERTUZUMAB [Suspect]
     Active Substance: PERTUZUMAB
     Indication: Breast cancer metastatic
     Dosage: 840 MG
     Route: 042
     Dates: start: 20170303, end: 20170303
  4. PERTUZUMAB [Suspect]
     Active Substance: PERTUZUMAB
     Dosage: 420 MG, Q3W (SOLUTION FOR INFUSION)
     Route: 042
     Dates: start: 20170327, end: 20171129
  5. TRASTUZUMAB [Suspect]
     Active Substance: TRASTUZUMAB
     Indication: Breast cancer metastatic
     Dosage: 1092 MG, TIW
     Route: 042
     Dates: start: 20170303, end: 20170303
  6. TRASTUZUMAB [Suspect]
     Active Substance: TRASTUZUMAB
     Dosage: 819 MG, TIW
     Route: 042
     Dates: start: 20170324, end: 20170509
  7. TRASTUZUMAB [Suspect]
     Active Substance: TRASTUZUMAB
     Dosage: 798 MG, TIW
     Route: 042
     Dates: start: 20170606, end: 20171108
  8. TRASTUZUMAB [Suspect]
     Active Substance: TRASTUZUMAB
     Dosage: 777 MG, TIW
     Route: 042
     Dates: start: 20171129, end: 20171129
  9. ADO-TRASTUZUMAB EMTANSINE [Suspect]
     Active Substance: ADO-TRASTUZUMAB EMTANSINE
     Indication: Breast cancer metastatic
     Dosage: 460 MG, TIW
     Route: 042
     Dates: start: 20171218, end: 20180222
  10. ADO-TRASTUZUMAB EMTANSINE [Suspect]
     Active Substance: ADO-TRASTUZUMAB EMTANSINE
     Dosage: 420 MG, TIW
     Route: 042
     Dates: start: 20180524, end: 20180725
  11. ADO-TRASTUZUMAB EMTANSINE [Suspect]
     Active Substance: ADO-TRASTUZUMAB EMTANSINE
     Dosage: 400 MG, TIW
     Route: 042
     Dates: start: 20180815, end: 20181203
  12. ADO-TRASTUZUMAB EMTANSINE [Suspect]
     Active Substance: ADO-TRASTUZUMAB EMTANSINE
     Dosage: 380 MG, TIW
     Route: 042
     Dates: start: 20181203, end: 20181203
  13. HALOPERIDOL [Concomitant]
     Active Substance: HALOPERIDOL
     Indication: Nausea
     Dosage: 1.5 MG
     Route: 048
  14. LANSOPRAZOLE [Concomitant]
     Active Substance: LANSOPRAZOLE
     Indication: Dyspepsia
     Dosage: 30 MG, QD
     Route: 048
     Dates: start: 201703
  15. ZOPICLONE [Concomitant]
     Active Substance: ZOPICLONE
     Indication: Insomnia
     Dosage: 7.5 MG
     Route: 048
  16. MST (MORPHINE) [Concomitant]
     Indication: Pain
     Dosage: 30 MG, QD
     Route: 048
     Dates: start: 201702
  17. LORAZEPAM [Concomitant]
     Active Substance: LORAZEPAM
     Indication: Anxiety
     Dosage: 0.5 MG
     Route: 048
  18. DOCUSATE SODIUM [Concomitant]
     Active Substance: DOCUSATE SODIUM
     Indication: Constipation
     Dosage: 200 MG, BID
     Route: 048
  19. DOMPERIDONE [Concomitant]
     Active Substance: DOMPERIDONE
     Indication: Nausea
     Dosage: 10 MG, TID
     Route: 048
  20. MORPHINE SULFATE [Concomitant]
     Active Substance: MORPHINE SULFATE
     Indication: Pain
     Dosage: UNK
     Route: 065
     Dates: start: 20170101
  21. MORPHINE SULFATE [Concomitant]
     Active Substance: MORPHINE SULFATE
     Dosage: UNK
     Route: 065
     Dates: start: 20171001
  22. DOXYCYCLINE [Concomitant]
     Active Substance: DOXYCYCLINE
     Indication: Lower respiratory tract infection
     Dosage: UNK
     Route: 065
  23. PERINDOPRIL [Concomitant]
     Active Substance: PERINDOPRIL
     Indication: Product used for unknown indication
     Dosage: 8 MG, QD
     Route: 048
  24. MAGNESIUM GLYCEROPHOSPHATE [Concomitant]
     Active Substance: MAGNESIUM GLYCEROPHOSPHATE
     Indication: Hypomagnesaemia
     Dosage: 3 DF, QD (8 OTHER)
     Route: 048
  25. METHADONE [Concomitant]
     Active Substance: METHADONE HYDROCHLORIDE
     Indication: Pain
     Dosage: 10 MG, BID
     Route: 048
  26. GABAPENTIN [Concomitant]
     Active Substance: GABAPENTIN
     Indication: Pain
     Dosage: 200 MG
     Route: 048
  27. METOCLOPRAMIDE [Concomitant]
     Active Substance: METOCLOPRAMIDE
     Indication: Illness
     Dosage: 10 MG, TID
     Route: 048
  28. SENNA [Concomitant]
     Active Substance: SENNA LEAF\SENNOSIDES\SENNOSIDES A AND B
     Indication: Constipation
     Dosage: 15 MG
     Route: 048
  29. POLYETHYLENE GLYCOL 3350\POTASSIUM CHLORIDE\SODIUM BICARBONATE\SODIUM [Concomitant]
     Active Substance: POLYETHYLENE GLYCOL 3350\POTASSIUM CHLORIDE\SODIUM BICARBONATE\SODIUM CHLORIDE
     Indication: Constipation
     Dosage: 2 DF, QD, (1OTHER)
     Route: 048
  30. DOXAZOSIN [Concomitant]
     Active Substance: DOXAZOSIN MESYLATE
     Indication: Product used for unknown indication
     Dosage: 4 MG, BID
     Route: 048
  31. OXYCODONE [Concomitant]
     Active Substance: OXYCODONE
     Indication: Pain
     Dosage: 5 UNK, PRN (27 DEC 2018, TWICE A DAY)
     Route: 048
     Dates: start: 20171124
  32. MIRTAZAPINE [Concomitant]
     Active Substance: MIRTAZAPINE
     Indication: Depression
     Dosage: 30 MG
     Route: 048
  33. MIRTAZAPINE [Concomitant]
     Active Substance: MIRTAZAPINE
     Dosage: 30 MG
     Route: 048
  34. DEXAMETHASONE [Concomitant]
     Active Substance: DEXAMETHASONE
     Indication: Back pain
     Dosage: 8 MG, QD
     Route: 048
     Dates: start: 20190131, end: 20190209
  35. CLOTRIMAZOLE [Concomitant]
     Active Substance: CLOTRIMAZOLE
     Indication: Product used for unknown indication
     Dosage: 1 %, TID
     Route: 061
     Dates: start: 20181210, end: 20181223
  36. PREGABALIN [Concomitant]
     Active Substance: PREGABALIN
     Indication: Product used for unknown indication
     Dosage: 50 MG, BID
     Route: 048
     Dates: start: 20190207, end: 20190221
  37. OSELTAMIVIR [Concomitant]
     Active Substance: OSELTAMIVIR
     Indication: Influenza
     Dosage: 75 MG, BID
     Route: 048
     Dates: start: 20190207, end: 20190212
  38. CIPROFLOXACIN [Concomitant]
     Active Substance: CIPROFLOXACIN
     Indication: Product used for unknown indication
     Dosage: 500 MG, BID
     Route: 048
     Dates: start: 20190102, end: 20190108
  39. CITALOPRAM [Concomitant]
     Active Substance: CITALOPRAM HYDROBROMIDE
     Indication: Product used for unknown indication
     Dosage: 20 MG, QD
     Route: 048
     Dates: start: 20190226
  40. AMOXICILLIN\CLAVULANATE POTASSIUM [Concomitant]
     Active Substance: AMOXICILLIN\CLAVULANATE POTASSIUM
     Indication: Lower respiratory tract infection
     Dosage: 625 MG, TID (ON 27 DEC 2018)
     Route: 048
     Dates: start: 20190122, end: 20190127

REACTIONS (3)
  - Malaise [Recovered/Resolved]
  - Dyspnoea [Recovered/Resolved]
  - Dyspnoea [Recovered/Resolved with Sequelae]

NARRATIVE: CASE EVENT DATE: 20181221
